FAERS Safety Report 8425667-2 (Version None)
Quarter: 2012Q2

REPORT INFORMATION
  Report Type: 
  Country: None (occurrence: None)
  Receive Date: 20120601
  Receipt Date: 20120522
  Transmission Date: 20120825
  Serious: Yes (Other)
  Sender: FDA-Public Use
  Company Number: WAES 1205USA04618

PATIENT
  Age: 69 Year
  Sex: Male

DRUGS (5)
  1. LASIX [Concomitant]
  2. FLUVASTATIN [Concomitant]
  3. PREDNISOLONE [Concomitant]
  4. JANUVIA [Suspect]
     Indication: TYPE 2 DIABETES MELLITUS
     Dosage: 50MG/DAILY
     Route: 048
     Dates: start: 20120322
  5. AMARYL [Concomitant]

REACTIONS (1)
  - BLOOD GLUCOSE INCREASED [None]
